FAERS Safety Report 7245728 (Version 3)
Quarter: 2013Q2

REPORT INFORMATION
  Report Type: Spontaneous
  Country: US (occurrence: US)
  Receive Date: 20100114
  Receipt Date: 20130417
  Transmission Date: 20140414
  Serious: Yes (Hospitalization)
  Sender: FDA-Public Use
  Company Number: US-BAYER-201010994NA

PATIENT
  Age: 19 Year
  Sex: Female
  Weight: 74.38 kg

DRUGS (2)
  1. YAZ [Suspect]
     Route: 048
     Dates: start: 200804, end: 200911
  2. ADVIL [CHLORPHENAMINE MALEATE,IBUPROFEN,PSEUDOEPHEDRINE HYDROCHLOR [Concomitant]
     Indication: MENSTRUAL CYCLE MANAGEMENT

REACTIONS (6)
  - Pulmonary embolism [None]
  - Gait disturbance [None]
  - Deep vein thrombosis [None]
  - Deep vein thrombosis [None]
  - Thrombophlebitis superficial [None]
  - Pelvic venous thrombosis [None]
